FAERS Safety Report 6013754-8 (Version None)
Quarter: 2008Q4

REPORT INFORMATION
  Report Type: 
  Country: None (occurrence: None)
  Receive Date: 20081219
  Receipt Date: 20081210
  Transmission Date: 20090506
  Serious: Yes (Other)
  Sender: FDA-Public Use
  Company Number: B0549929A

PATIENT
  Age: 32 Year
  Sex: Female

DRUGS (2)
  1. AUGMENTIN '125' [Suspect]
     Indication: DRUG USE FOR UNKNOWN INDICATION
     Dosage: 1UNIT SINGLE DOSE
     Route: 048
     Dates: start: 20080501, end: 20080501
  2. ZELITREX [Concomitant]
     Route: 065

REACTIONS (4)
  - DYSPNOEA [None]
  - ORAL PRURITUS [None]
  - PRURITUS [None]
  - URTICARIA [None]
